FAERS Safety Report 23080274 (Version 1)
Quarter: 2023Q4

REPORT INFORMATION
  Report Type: Spontaneous
  Country: US (occurrence: US)
  Receive Date: 20231018
  Receipt Date: 20231018
  Transmission Date: 20240110
  Serious: Yes (Life-Threatening)
  Sender: FDA-Public Use
  Company Number: US-PFIZER INC-2020412708

PATIENT
  Age: 22 Year
  Sex: Female

DRUGS (12)
  1. METHYLPREDNISOLONE SODIUM SUCCINATE [Suspect]
     Active Substance: METHYLPREDNISOLONE SODIUM SUCCINATE
     Indication: Haemophagocytic lymphohistiocytosis
     Dosage: 1 G, DAILY (STARTING ON THE 4TH DAY OF HER HOSPITAL COURSE)
     Route: 042
  2. METHYLPREDNISOLONE SODIUM SUCCINATE [Suspect]
     Active Substance: METHYLPREDNISOLONE SODIUM SUCCINATE
     Indication: Still^s disease
     Dosage: 60 MG, DAILY
     Route: 042
  3. DIPHENHYDRAMINE HYDROCHLORIDE [Suspect]
     Active Substance: DIPHENHYDRAMINE HYDROCHLORIDE
     Indication: Rash pruritic
     Dosage: UNK, DAILY
  4. DIPHENHYDRAMINE HYDROCHLORIDE [Suspect]
     Active Substance: DIPHENHYDRAMINE HYDROCHLORIDE
     Indication: Pyrexia
  5. PREDNISONE [Suspect]
     Active Substance: PREDNISONE
     Indication: Rash pruritic
     Dosage: 20 MG, DAILY
  6. PREDNISONE [Suspect]
     Active Substance: PREDNISONE
     Indication: Pyrexia
     Dosage: UNK, DAILY (TAPERING COURSE)
  7. PREDNISONE [Suspect]
     Active Substance: PREDNISONE
     Indication: Still^s disease
     Dosage: 60 MG, DAILY
  8. PREDNISONE [Suspect]
     Active Substance: PREDNISONE
     Indication: Haemophagocytic lymphohistiocytosis
  9. ANAKINRA [Suspect]
     Active Substance: ANAKINRA
     Indication: Haemophagocytic lymphohistiocytosis
     Dosage: 100 MG, DAILY
     Route: 058
  10. ANAKINRA [Suspect]
     Active Substance: ANAKINRA
     Indication: Still^s disease
  11. ACETAMINOPHEN [Suspect]
     Active Substance: ACETAMINOPHEN
     Indication: Pyrexia
     Dosage: UNK, DAILY
  12. ACETAMINOPHEN [Suspect]
     Active Substance: ACETAMINOPHEN
     Indication: Rash pruritic

REACTIONS (2)
  - Drug ineffective for unapproved indication [Recovered/Resolved with Sequelae]
  - Off label use [Unknown]
